FAERS Safety Report 7456751-8 (Version None)
Quarter: 2011Q2

REPORT INFORMATION
  Report Type: 
  Country: None (occurrence: None)
  Receive Date: 20110503
  Receipt Date: 20110425
  Transmission Date: 20111010
  Serious: Yes (Other)
  Sender: FDA-Public Use
  Company Number: US-AMGEN-USASP2011014338

PATIENT
  Age: 63 Year
  Sex: Female

DRUGS (3)
  1. ENBREL [Suspect]
     Indication: POLYARTHRITIS
     Dosage: 50 MG, QWK
     Dates: start: 20100901
  2. PREDNISOLONE [Concomitant]
  3. ENBREL [Suspect]

REACTIONS (12)
  - DEPRESSION [None]
  - ADDISON'S DISEASE [None]
  - BLOOD GLUCOSE INCREASED [None]
  - HEADACHE [None]
  - SENSATION OF HEAVINESS [None]
  - INJECTION SITE HAEMATOMA [None]
  - EXPOSURE TO ALLERGEN [None]
  - BACTERIAL INFECTION [None]
  - ARTHRALGIA [None]
  - THERAPEUTIC RESPONSE DECREASED [None]
  - ARTHRITIS [None]
  - SINUSITIS [None]
